FAERS Safety Report 10926531 (Version 2)
Quarter: 2015Q2

REPORT INFORMATION
  Report Type: Spontaneous
  Country: US (occurrence: US)
  Receive Date: 20150318
  Receipt Date: 20150410
  Transmission Date: 20150821
  Serious: No
  Sender: FDA-Public Use
  Company Number: US-BAYER-2015-032369

PATIENT
  Age: 31 Year
  Sex: Female
  Weight: 69.39 kg

DRUGS (1)
  1. ALEVE [Suspect]
     Active Substance: NAPROXEN SODIUM
     Indication: MIGRAINE
     Dosage: 2 DF, PRN
     Route: 048
     Dates: start: 2010

REACTIONS (2)
  - Therapeutic response unexpected [None]
  - Medication error [Recovered/Resolved]
